FAERS Safety Report 14347754 (Version 1)
Quarter: 2018Q1

REPORT INFORMATION
  Report Type: Spontaneous
  Country: US (occurrence: US)
  Receive Date: 20180103
  Receipt Date: 20180103
  Transmission Date: 20180509
  Serious: No
  Sender: FDA-Public Use
  Company Number: US-PFIZER INC-2017554955

PATIENT
  Age: 51 Year
  Sex: Female

DRUGS (3)
  1. LYRICA [Suspect]
     Active Substance: PREGABALIN
     Indication: SPINAL FUSION SURGERY
     Dosage: 75 MG, 1X/DAY
     Route: 048
  2. LYRICA [Suspect]
     Active Substance: PREGABALIN
     Indication: PAIN
  3. LYRICA [Suspect]
     Active Substance: PREGABALIN
     Indication: FIBROMYALGIA
     Dosage: 50 MG, ONE CAPSULE BY MOUTH ONCE A DAY
     Route: 048

REACTIONS (5)
  - Swelling [Unknown]
  - Drug ineffective [Unknown]
  - Peripheral swelling [Unknown]
  - Weight increased [Unknown]
  - Product use issue [Unknown]
